FAERS Safety Report 9769405 (Version 1)
Quarter: 2013Q4

REPORT INFORMATION
  Report Type: Spontaneous
  Country: US (occurrence: None)
  Receive Date: 20131218
  Receipt Date: 20131218
  Transmission Date: 20140711
  Serious: Yes (Other)
  Sender: FDA-Public Use
  Company Number: 2012032310

PATIENT
  Age: 57 Year
  Sex: Male

DRUGS (1)
  1. RHOPHYLAC (RHO(D) IMMUNE GLOBULIN INTRAVENOUS (HUMAN)) [Suspect]
     Indication: RHESUS INCOMPATIBILITY
     Dosage: ()

REACTIONS (1)
  - Rhesus antibodies positive [None]
